FAERS Safety Report 15838894 (Version 1)
Quarter: 2019Q1

REPORT INFORMATION
  Report Type: Spontaneous
  Country: DE (occurrence: DE)
  Receive Date: 20190117
  Receipt Date: 20190117
  Transmission Date: 20190417
  Serious: Yes (Hospitalization)
  Sender: FDA-Public Use
  Company Number: DE-ANIPHARMA-2019-DE-000010

PATIENT
  Age: 83 Year
  Sex: Male

DRUGS (12)
  1. XARELTO [Suspect]
     Active Substance: RIVAROXABAN
     Dosage: 105 MG ONCE
     Route: 048
     Dates: start: 20181226, end: 20181226
  2. VIGANTOLETTEN [Suspect]
     Active Substance: CHOLECALCIFEROL
     Dosage: 7000 IU ONCE
     Route: 048
     Dates: start: 20181226, end: 20181226
  3. PANTOPRAZOLE [Suspect]
     Active Substance: PANTOPRAZOLE
     Dosage: 180 MG ONCE
     Route: 048
     Dates: start: 20181226, end: 20181226
  4. PIPAMPERONE [Suspect]
     Active Substance: PIPAMPERONE
     Dosage: UNK
     Route: 048
     Dates: start: 20181226, end: 20181226
  5. TILIDIN COMP ^ALIUD PHARMA^ [Suspect]
     Active Substance: NALOXONE HYDROCHLORIDE\TILIDINE HYDROCHLORIDE
     Dosage: UNK
     Route: 048
     Dates: start: 20181226, end: 20181226
  6. SIMVASTATIN. [Suspect]
     Active Substance: SIMVASTATIN
     Dosage: UNK
     Route: 048
     Dates: start: 20181226, end: 20181226
  7. FERRO-SANOL DUODENAL [Suspect]
     Active Substance: FERROUS GLYCINE SULFATE
     Dosage: UNK
     Route: 048
     Dates: start: 20181226, end: 20181226
  8. METHOCARBAMOL. [Suspect]
     Active Substance: METHOCARBAMOL
     Dosage: UNK
     Route: 048
     Dates: start: 20181226, end: 20181226
  9. METFORMIN [Suspect]
     Active Substance: METFORMIN HYDROCHLORIDE
     Dosage: UNKNOWN NON-AZ PRODUCT
     Route: 048
     Dates: start: 20181226, end: 20181226
  10. PREDNISOLONE. [Suspect]
     Active Substance: PREDNISOLONE
     Dosage: UNK
     Route: 048
     Dates: start: 20181226, end: 20181226
  11. CANDESARTAN HCT [Suspect]
     Active Substance: CANDESARTAN CILEXETIL\HYDROCHLOROTHIAZIDE
     Indication: PRODUCT USED FOR UNKNOWN INDICATION
     Dosage: 1 DF DAILY
     Route: 048
     Dates: start: 20181226, end: 20181226
  12. SERTRALINE [Suspect]
     Active Substance: SERTRALINE HYDROCHLORIDE
     Dosage: UNK
     Route: 048
     Dates: start: 20181226, end: 20181226

REACTIONS (4)
  - Overdose [Unknown]
  - Suicidal ideation [Unknown]
  - Hypertension [Unknown]
  - Fatigue [Unknown]

NARRATIVE: CASE EVENT DATE: 20181226
